FAERS Safety Report 23652114 (Version 3)
Quarter: 2024Q4

REPORT INFORMATION
  Report Type: Spontaneous
  Country: DE (occurrence: DE)
  Receive Date: 20240320
  Receipt Date: 20241218
  Transmission Date: 20250115
  Serious: Yes (Other)
  Sender: ALKEM
  Company Number: None

PATIENT
  Age: 12 Year
  Sex: Female

DRUGS (8)
  1. EVEROLIMUS [Suspect]
     Active Substance: EVEROLIMUS
     Indication: Immunosuppressant drug therapy
     Dosage: UNK
     Route: 065
  2. EVEROLIMUS [Suspect]
     Active Substance: EVEROLIMUS
     Indication: Transplant dysfunction
  3. EVEROLIMUS [Suspect]
     Active Substance: EVEROLIMUS
     Indication: Complications of transplanted liver
  4. EVEROLIMUS [Suspect]
     Active Substance: EVEROLIMUS
     Indication: Liver transplant
  5. BASILIXIMAB [Suspect]
     Active Substance: BASILIXIMAB
     Indication: Immunosuppressant drug therapy
     Dosage: 2 DOSAGE FORM
     Route: 065
  6. CYCLOSPORINE [Suspect]
     Active Substance: CYCLOSPORINE
     Indication: Liver transplant
     Dosage: UNK
     Route: 065
  7. CYCLOSPORINE [Suspect]
     Active Substance: CYCLOSPORINE
     Indication: Immunosuppressant drug therapy
  8. CYCLOSPORINE [Suspect]
     Active Substance: CYCLOSPORINE
     Indication: Complications of transplanted liver

REACTIONS (4)
  - Treatment failure [Unknown]
  - Cytopenia [Unknown]
  - Bacterial infection [Unknown]
  - Off label use [Unknown]
